FAERS Safety Report 25413192 (Version 1)
Quarter: 2025Q2

REPORT INFORMATION
  Report Type: Spontaneous
  Country: US (occurrence: US)
  Receive Date: 20250609
  Receipt Date: 20250609
  Transmission Date: 20250716
  Serious: Yes (Hospitalization)
  Sender: TEVA
  Company Number: US-TEVA-VS-3337839

PATIENT

DRUGS (2)
  1. DEXTROAMPHETAMINE SULFATE [Suspect]
     Active Substance: DEXTROAMPHETAMINE SULFATE
     Indication: Attention deficit hyperactivity disorder
     Route: 065
     Dates: start: 2025
  2. BUPROPION [Suspect]
     Active Substance: BUPROPION
     Indication: Depression
     Route: 065

REACTIONS (5)
  - Psychotic disorder [Unknown]
  - Product quality issue [Unknown]
  - Suspected counterfeit product [Unknown]
  - Accidental overdose [Unknown]
  - Drug level abnormal [Unknown]

NARRATIVE: CASE EVENT DATE: 20250325
